FAERS Safety Report 15987982 (Version 2)
Quarter: 2019Q1

REPORT INFORMATION
  Report Type: Report from Study
  Country: None (occurrence: US)
  Receive Date: 20190220
  Receipt Date: 20190323
  Transmission Date: 20190418
  Serious: Yes (Other)
  Sender: FDA-Public Use
  Company Number: US-ABBVIE-19K-163-2666772-00

PATIENT
  Age: 64 Year
  Sex: Female

DRUGS (1)
  1. HUMIRA [Suspect]
     Active Substance: ADALIMUMAB
     Indication: RHEUMATOID ARTHRITIS
     Route: 058

REACTIONS (6)
  - Exostosis [Unknown]
  - Rheumatoid arthritis [Unknown]
  - Energy increased [Unknown]
  - Heart rate abnormal [Unknown]
  - Osteoarthritis [Unknown]
  - Bone pain [Unknown]

NARRATIVE: CASE EVENT DATE: 201812
